FAERS Safety Report 21357798 (Version 1)
Quarter: 2022Q3

REPORT INFORMATION
  Report Type: Spontaneous
  Country: CN (occurrence: CN)
  Receive Date: 20220921
  Receipt Date: 20220921
  Transmission Date: 20221027
  Serious: Yes (Life-Threatening, Hospitalization, Other)
  Sender: FDA-Public Use
  Company Number: CN-CELGENE-CHN-20200507412

PATIENT
  Age: 67 Year
  Sex: Male
  Weight: 44 kg

DRUGS (8)
  1. ABRAXANE [Suspect]
     Active Substance: PACLITAXEL
     Indication: Squamous cell carcinoma of lung
     Dosage: FREQUENCY TEXT: DAYS 1, 8, AND 15 OF EACH CYCLE?143 MILLIGRAM
     Route: 041
     Dates: start: 20200325, end: 20200325
  2. ABRAXANE [Suspect]
     Active Substance: PACLITAXEL
     Route: 041
     Dates: start: 20200420, end: 20200420
  3. ABRAXANE [Suspect]
     Active Substance: PACLITAXEL
     Dosage: FREQUENCY TEXT: DAYS 1,8, AND 15 OF EACH CYCLE?149 MILLIGRAM
     Route: 041
     Dates: start: 20200403, end: 20200403
  4. ABRAXANE [Suspect]
     Active Substance: PACLITAXEL
     Dosage: FREQUENCY TEXT: DAYS 1,8, AND 15 OF EACH CYCLE?149 MILLIGRAM
     Route: 041
     Dates: start: 20200410, end: 20200410
  5. CARBOPLATIN [Suspect]
     Active Substance: CARBOPLATIN
     Indication: Squamous cell carcinoma of lung
     Dosage: AUC=5
     Route: 041
     Dates: start: 20200325, end: 20200325
  6. CARBOPLATIN [Suspect]
     Active Substance: CARBOPLATIN
     Dosage: AUC=5
     Route: 041
     Dates: start: 20200420, end: 20200420
  7. SERPLULIMAB [Suspect]
     Active Substance: SERPLULIMAB
     Indication: Squamous cell carcinoma of lung
     Route: 041
     Dates: start: 20200325, end: 20200325
  8. SERPLULIMAB [Suspect]
     Active Substance: SERPLULIMAB
     Route: 041
     Dates: start: 20200420, end: 20200420

REACTIONS (2)
  - Anaemia [Not Recovered/Not Resolved]
  - Pneumonia [Not Recovered/Not Resolved]

NARRATIVE: CASE EVENT DATE: 20200401
